FAERS Safety Report 16236145 (Version 1)
Quarter: 2019Q2

REPORT INFORMATION
  Report Type: Spontaneous
  Country: AU (occurrence: AU)
  Receive Date: 20190425
  Receipt Date: 20190425
  Transmission Date: 20190711
  Serious: Yes (Other)
  Sender: FDA-Public Use
  Company Number: AU-MACLEODS PHARMACEUTICALS US LTD-MAC2019020995

PATIENT

DRUGS (1)
  1. PRAMIPEXOLE. [Suspect]
     Active Substance: PRAMIPEXOLE
     Indication: PARKINSONISM
     Dosage: UNK
     Route: 065

REACTIONS (3)
  - Hypersexuality [Recovering/Resolving]
  - Compulsive shopping [Recovering/Resolving]
  - Impulse-control disorder [Recovering/Resolving]
